FAERS Safety Report 17437049 (Version 2)
Quarter: 2020Q2

REPORT INFORMATION
  Report Type: Spontaneous
  Country: US (occurrence: US)
  Receive Date: 20200219
  Receipt Date: 20200402
  Transmission Date: 20200713
  Serious: No
  Sender: FDA-Public Use
  Company Number: NVSC2020US045967

PATIENT
  Sex: Female

DRUGS (1)
  1. KETOROLAC TROMETHAMINE. [Suspect]
     Active Substance: KETOROLAC TROMETHAMINE
     Indication: PRODUCT USED FOR UNKNOWN INDICATION
     Dosage: 0.5 %, QID
     Route: 065

REACTIONS (3)
  - Product administration error [Unknown]
  - Product dropper issue [Unknown]
  - Product dose omission [Unknown]
